FAERS Safety Report 4803682-5 (Version None)
Quarter: 2005Q4

REPORT INFORMATION
  Report Type: 
  Country: None (occurrence: None)
  Receive Date: 20051017
  Receipt Date: 20050712
  Transmission Date: 20060501
  Serious: Yes (Other)
  Sender: FDA-Public Use
  Company Number: HQWYE250418JUL05

PATIENT
  Age: 35 Year
  Sex: Female

DRUGS (2)
  1. ALAVERT [Suspect]
     Indication: HYPERSENSITIVITY
     Dosage: ORAL
     Route: 048
  2. ADIPEX-P [Concomitant]

REACTIONS (1)
  - HOT FLUSH [None]
